FAERS Safety Report 4783636-8 (Version None)
Quarter: 2005Q3

REPORT INFORMATION
  Report Type: 
  Country: None (occurrence: None)
  Receive Date: 20050928
  Receipt Date: 20050912
  Transmission Date: 20060218
  Serious: Yes (Other)
  Sender: FDA-Public Use
  Company Number: GBS050918425

PATIENT
  Age: 69 Year
  Sex: Female

DRUGS (1)
  1. FLUOXETINE [Suspect]

REACTIONS (5)
  - BALANCE DISORDER [None]
  - CEREBRAL DISORDER [None]
  - HYPERHIDROSIS [None]
  - PAIN [None]
  - PARKINSON'S DISEASE [None]
